FAERS Safety Report 7224846-X (Version None)
Quarter: 2011Q1

REPORT INFORMATION
  Report Type: 
  Country: None (occurrence: None)
  Receive Date: 20110103
  Receipt Date: 20101217
  Transmission Date: 20110831
  Serious: Yes (Other)
  Sender: FDA-Public Use
  Company Number: 2010SP065585

PATIENT

DRUGS (2)
  1. PEGINTERFERON ALFA-2A (PEGINTERFDERON ALFA-2A) [Suspect]
     Indication: HEPATITIS B
     Dosage: 180 MCG; QW
  2. RIBAVIRIN [Suspect]
     Indication: HEPATITIS C
     Dosage: QD

REACTIONS (33)
  - GASTROINTESTINAL HAEMORRHAGE [None]
  - HAEMOLYTIC ANAEMIA [None]
  - NERVOUS SYSTEM DISORDER [None]
  - DRY MOUTH [None]
  - DECREASED APPETITE [None]
  - VOMITING [None]
  - CONSTIPATION [None]
  - DEPRESSION [None]
  - MYALGIA [None]
  - WEIGHT DECREASED [None]
  - ANAEMIA [None]
  - ILEUS [None]
  - ROAD TRAFFIC ACCIDENT [None]
  - ERYTHEMA [None]
  - SYNCOPE [None]
  - DYSPNOEA [None]
  - PRURITUS [None]
  - CHOLECYSTITIS [None]
  - INFLUENZA [None]
  - MOUTH ULCERATION [None]
  - DIARRHOEA [None]
  - ALOPECIA [None]
  - PALPITATIONS [None]
  - GASTROINTESTINAL DISORDER [None]
  - VISION BLURRED [None]
  - ANXIETY [None]
  - ABNORMAL SENSATION IN EYE [None]
  - VISUAL IMPAIRMENT [None]
  - CHOLELITHIASIS [None]
  - CELLULITIS [None]
  - NAUSEA [None]
  - INSOMNIA [None]
  - HEADACHE [None]
